FAERS Safety Report 8839509 (Version 2)
Quarter: 2015Q1

REPORT INFORMATION
  Report Type: Spontaneous
  Country: US (occurrence: US)
  Receive Date: 20121015
  Receipt Date: 20150303
  Transmission Date: 20150721
  Serious: Yes (Hospitalization)
  Sender: FDA-Public Use
  Company Number: US-BAYER-2012-105397

PATIENT
  Age: 31 Year
  Sex: Female

DRUGS (13)
  1. YAZ [Suspect]
     Active Substance: DROSPIRENONE\ETHINYL ESTRADIOL
     Indication: MOOD SWINGS
  2. WELLBUTRIN [Concomitant]
     Active Substance: BUPROPION HYDROCHLORIDE
  3. DIFFERIN [Concomitant]
     Active Substance: ADAPALENE
     Dosage: 0.1 %, APPLY AT BEDTIME
  4. SULFAMETHOXAZOLE-TRIMETHOPRIM (SMZ) [Concomitant]
     Active Substance: SULFAMETHOXAZOLE\TRIMETHOPRIM
     Dosage: 1 DF, BID
  5. TRI-VENT DM [Concomitant]
     Dosage: TWO TEASPOONFUL EVERY FOUR TO SIX HOURS
  6. ZOFRAN [Concomitant]
     Active Substance: ONDANSETRON HYDROCHLORIDE
  7. PHENAZOPYRIDINE. [Concomitant]
     Active Substance: PHENAZOPYRIDINE
     Dosage: 200 MG, TID
  8. RETIN-A MICRO [Concomitant]
     Active Substance: TRETINOIN
     Dosage: APPLY EVERY BEDTIME
  9. ZANTAC [Concomitant]
     Active Substance: RANITIDINE HYDROCHLORIDE
  10. DILAUDID [Concomitant]
     Active Substance: HYDROMORPHONE HYDROCHLORIDE
  11. COLACE [Concomitant]
     Active Substance: DOCUSATE SODIUM
  12. ZYRTEC [Concomitant]
     Active Substance: CETIRIZINE HYDROCHLORIDE
     Dosage: UNK
     Dates: start: 20061023
  13. OMNICEF [Concomitant]
     Active Substance: CEFDINIR
     Dosage: 300 MG, BID

REACTIONS (2)
  - Deep vein thrombosis [None]
  - Splenic infarction [None]

NARRATIVE: CASE EVENT DATE: 20061110
